FAERS Safety Report 19837283 (Version 2)
Quarter: 2021Q3

REPORT INFORMATION
  Report Type: Spontaneous
  Country: MX (occurrence: MX)
  Receive Date: 20210915
  Receipt Date: 20210924
  Transmission Date: 20211014
  Serious: Yes (Other)
  Sender: FDA-Public Use
  Company Number: MX-PFIZER INC-202100942130

PATIENT
  Age: 68 Year
  Sex: Female

DRUGS (1)
  1. HALCION [Suspect]
     Active Substance: TRIAZOLAM
     Dosage: 1 DF, DAILY (0.125 UNKNOWN UNIT)
     Route: 048
     Dates: start: 1991

REACTIONS (11)
  - Suicidal ideation [Unknown]
  - Hernia [Unknown]
  - Product use issue [Unknown]
  - Blood pressure increased [Unknown]
  - Panic attack [Recovered/Resolved]
  - Feeling abnormal [Unknown]
  - Poisoning [Unknown]
  - Depression [Unknown]
  - Nervousness [Unknown]
  - Malaise [Unknown]
  - Therapeutic response unexpected [Unknown]

NARRATIVE: CASE EVENT DATE: 2001
